FAERS Safety Report 21766931 (Version 1)
Quarter: 2022Q4

REPORT INFORMATION
  Report Type: Spontaneous
  Country: US (occurrence: None)
  Receive Date: 20221222
  Receipt Date: 20221222
  Transmission Date: 20230113
  Serious: Yes (Other)
  Sender: FDA-Public Use
  Company Number: None

PATIENT
  Age: 67 Year
  Sex: Female

DRUGS (1)
  1. IDECABTAGENE VICLEUCEL [Suspect]
     Active Substance: IDECABTAGENE VICLEUCEL

REACTIONS (12)
  - Pyrexia [None]
  - Blood pressure decreased [None]
  - Wheezing [None]
  - Bacterial sepsis [None]
  - Abdominal pain [None]
  - Blood lactic acid increased [None]
  - Bacteraemia [None]
  - Hypotension [None]
  - Cholelithiasis [None]
  - Cholecystitis acute [None]
  - Escherichia sepsis [None]
  - Cytomegalovirus infection reactivation [None]

NARRATIVE: CASE EVENT DATE: 20220926
